FAERS Safety Report 5207030-0 (Version None)
Quarter: 2007Q1

REPORT INFORMATION
  Report Type: 
  Country: None (occurrence: None)
  Receive Date: 20070112
  Receipt Date: 20070108
  Transmission Date: 20070707
  Serious: Yes (Other)
  Sender: FDA-Public Use
  Company Number: US-BAYER-200614888BCC

PATIENT
  Age: 6 Year
  Sex: Female
  Weight: 27 kg

DRUGS (5)
  1. RID MOUSSE [Suspect]
     Indication: LICE INFESTATION
     Route: 061
     Dates: start: 20061128
  2. RID MOUSSE [Suspect]
     Route: 061
     Dates: start: 20061129
  3. RID COMB OUT GEL [Suspect]
     Indication: LICE INFESTATION
     Route: 061
     Dates: start: 20061129
  4. RID COMB [Suspect]
     Indication: LICE INFESTATION
     Route: 061
     Dates: start: 20061129
  5. RID SPRAY [Suspect]
     Indication: LICE INFESTATION
     Dates: start: 20061129

REACTIONS (5)
  - CONVULSION [None]
  - DYSKINESIA [None]
  - EYE ROLLING [None]
  - LICE INFESTATION [None]
  - MUSCULOSKELETAL STIFFNESS [None]
